FAERS Safety Report 7324669-7 (Version None)
Quarter: 2011Q1

REPORT INFORMATION
  Report Type: 
  Country: None (occurrence: None)
  Receive Date: 20110301
  Receipt Date: 20110223
  Transmission Date: 20110831
  Serious: No
  Sender: FDA-Public Use
  Company Number: US-BAYER-2011-017876

PATIENT
  Sex: Female

DRUGS (3)
  1. PENICILLIN [Interacting]
  2. PERCOCET [Concomitant]
  3. YAZ [Suspect]
     Route: 048

REACTIONS (3)
  - VAGINAL HAEMORRHAGE [None]
  - HYPOMENORRHOEA [None]
  - PREGNANCY ON ORAL CONTRACEPTIVE [None]
